FAERS Safety Report 18482370 (Version 1)
Quarter: 2020Q4

REPORT INFORMATION
  Report Type: Spontaneous
  Country: US (occurrence: US)
  Receive Date: 20201109
  Receipt Date: 20201109
  Transmission Date: 20210114
  Serious: No
  Sender: FDA-Public Use
  Company Number: US-ALLERGAN-2040111US

PATIENT
  Age: 46 Year
  Sex: Female

DRUGS (1)
  1. LO LOESTRIN FE [Suspect]
     Active Substance: ETHINYL ESTRADIOL\NORETHINDRONE ACETATE
     Indication: MENOPAUSAL SYMPTOMS

REACTIONS (4)
  - Metrorrhagia [Unknown]
  - Product colour issue [Unknown]
  - Amenorrhoea [Unknown]
  - Off label use [Unknown]
